FAERS Safety Report 8240418-2 (Version None)
Quarter: 2012Q1

REPORT INFORMATION
  Report Type: 
  Country: None (occurrence: None)
  Receive Date: 20120328
  Receipt Date: 20120316
  Transmission Date: 20120608
  Serious: Yes (Other)
  Sender: FDA-Public Use
  Company Number: US-SANOFI-AVENTIS-2012SA019192

PATIENT
  Age: 78 Year
  Sex: Male

DRUGS (3)
  1. SOLOSTAR [Suspect]
     Dates: start: 20110901
  2. HUMALOG [Concomitant]
  3. LANTUS [Suspect]
     Dosage: DOSE:20 UNIT(S)
     Route: 058
     Dates: start: 20110901

REACTIONS (3)
  - BLINDNESS [None]
  - CONDITION AGGRAVATED [None]
  - HYPOACUSIS [None]
